FAERS Safety Report 6806336-9 (Version None)
Quarter: 2010Q2

REPORT INFORMATION
  Report Type: 
  Country: None (occurrence: None)
  Receive Date: 20100629
  Receipt Date: 20080222
  Transmission Date: 20101027
  Serious: No
  Sender: FDA-Public Use
  Company Number: US-PFIZER INC-2007107488

PATIENT
  Sex: Male
  Weight: 75 kg

DRUGS (7)
  1. VIAGRA [Interacting]
     Indication: ERECTILE DYSFUNCTION
     Dates: start: 20060101
  2. CHANTIX [Suspect]
     Indication: SMOKING CESSATION THERAPY
     Dates: start: 20070807
  3. ATENOLOL [Interacting]
     Indication: HYPERTENSION
     Dates: start: 20050401
  4. PLAVIX [Concomitant]
  5. VALSARTAN [Concomitant]
  6. CRESTOR [Concomitant]
  7. ZETIA [Concomitant]

REACTIONS (3)
  - DRUG INEFFECTIVE [None]
  - DRUG INTERACTION [None]
  - TOBACCO USER [None]
